FAERS Safety Report 5621676-7 (Version None)
Quarter: 2008Q1

REPORT INFORMATION
  Report Type: 
  Country: None (occurrence: None)
  Receive Date: 20080211
  Receipt Date: 20080128
  Transmission Date: 20080703
  Serious: Yes (Hospitalization)
  Sender: FDA-Public Use
  Company Number: US-AMGEN-QUU251343

PATIENT
  Sex: Female
  Weight: 87.6 kg

DRUGS (3)
  1. ENBREL [Suspect]
     Indication: RHEUMATOID ARTHRITIS
     Route: 030
     Dates: start: 20030701
  2. VICODIN [Concomitant]
  3. ALEVE [Concomitant]

REACTIONS (6)
  - APPENDICECTOMY [None]
  - COLOSTOMY [None]
  - FUNGAL INFECTION [None]
  - HERNIA [None]
  - PERITONITIS [None]
  - SURGERY [None]
